FAERS Safety Report 9150606 (Version 2)
Quarter: 2013Q1

REPORT INFORMATION
  Report Type: Spontaneous
  Country: US (occurrence: US)
  Receive Date: 20130308
  Receipt Date: 20130311
  Transmission Date: 20140127
  Serious: Yes (Other)
  Sender: FDA-Public Use
  Company Number: US-ROCHE-1195235

PATIENT
  Age: 77 Year
  Sex: Female
  Weight: 80.81 kg

DRUGS (1)
  1. BONIVA [Suspect]
     Indication: OSTEOPOROSIS
     Route: 042

REACTIONS (5)
  - Stent placement [Recovered/Resolved]
  - Infusion site extravasation [Recovered/Resolved]
  - Injection site extravasation [Recovered/Resolved]
  - Infusion site pain [Recovered/Resolved]
  - Infusion site swelling [Recovered/Resolved]
